FAERS Safety Report 9831150 (Version 4)
Quarter: 2014Q1

REPORT INFORMATION
  Report Type: Spontaneous
  Country: JP (occurrence: JP)
  Receive Date: 20140121
  Receipt Date: 20140303
  Transmission Date: 20141002
  Serious: Yes (Hospitalization)
  Sender: FDA-Public Use
  Company Number: JP-MERCK-1401JPN008031

PATIENT
  Age: 63 Year
  Sex: Female

DRUGS (8)
  1. GLACTIV [Suspect]
     Indication: TYPE 2 DIABETES MELLITUS
     Dosage: 50 MG, QD
     Route: 048
  2. WARFARIN POTASSIUM [Concomitant]
     Dosage: 6 MG PER DAY
  3. EPLERENONE [Concomitant]
     Dosage: 100 MG PER DAY
  4. FUROSEMIDE [Concomitant]
     Dosage: 160 MG PER DAY
     Route: 048
  5. TRICHLORMETHIAZIDE [Concomitant]
     Dosage: 2 MG PER DAY
     Route: 048
  6. POTASSIUM ASPARTATE [Concomitant]
     Dosage: 1,800 MG PER DAY
  7. POTASSIUM CHLORIDE [Concomitant]
     Dosage: 3,600 MG PER DAY
  8. HUMALOG [Concomitant]
     Dosage: 50 UNITS PER DAY

REACTIONS (6)
  - Pericarditis constrictive [Unknown]
  - Atrial fibrillation [Unknown]
  - Pulmonary arterial wedge pressure increased [Unknown]
  - Cardiac failure [Unknown]
  - Hypokalaemia [Unknown]
  - Renal impairment [Unknown]
